FAERS Safety Report 5677874-X (Version None)
Quarter: 2008Q1

REPORT INFORMATION
  Report Type: 
  Country: None (occurrence: None)
  Receive Date: 20080319
  Receipt Date: 20080304
  Transmission Date: 20080703
  Serious: Yes (Other)
  Sender: FDA-Public Use
  Company Number: 231914J08USA

PATIENT
  Age: 33 Year
  Sex: Female

DRUGS (5)
  1. REBIF [Suspect]
     Indication: MULTIPLE SCLEROSIS
     Dosage: 44 MCG, 3 IN 1 WEEKS, SUBCUTANEOUS
     Route: 058
     Dates: start: 20050824, end: 20071101
  2. VERPAMIL (VERAPAMIL HYDROCHLORIDE) [Concomitant]
  3. FIORICET (AXOTAL /00727001/) [Concomitant]
  4. ATENOLOL [Concomitant]
  5. TIZANIDINE HCL [Concomitant]

REACTIONS (6)
  - ABNORMAL SENSATION IN EYE [None]
  - EYE HAEMORRHAGE [None]
  - EYE PAIN [None]
  - THROMBOSIS [None]
  - VISUAL DISTURBANCE [None]
  - VITREOUS FLOATERS [None]
